FAERS Safety Report 9449927 (Version 1)
Quarter: 2013Q3

REPORT INFORMATION
  Report Type: Spontaneous
  Country: US (occurrence: US)
  Receive Date: 20130809
  Receipt Date: 20130809
  Transmission Date: 20140515
  Serious: Yes (Hospitalization)
  Sender: FDA-Public Use
  Company Number: US-JNJFOC-20130717754

PATIENT
  Sex: Female
  Weight: 56.7 kg

DRUGS (1)
  1. PANCREASE [Suspect]
     Indication: CYSTIC FIBROSIS
     Route: 048

REACTIONS (5)
  - Cystic fibrosis [Unknown]
  - Respiratory failure [Not Recovered/Not Resolved]
  - Aspiration [Not Recovered/Not Resolved]
  - Weight decreased [Not Recovered/Not Resolved]
  - Drug dose omission [Not Recovered/Not Resolved]
